FAERS Safety Report 12244854 (Version 1)
Quarter: 2016Q2

REPORT INFORMATION
  Report Type: Spontaneous
  Country: US (occurrence: None)
  Receive Date: 20160406
  Receipt Date: 20160406
  Transmission Date: 20160815
  Serious: No
  Sender: FDA-Public Use
  Company Number: None

PATIENT
  Age: 38 Year
  Sex: Female
  Weight: 102.06 kg

DRUGS (8)
  1. ALPRAZOLAM. [Concomitant]
     Active Substance: ALPRAZOLAM
  2. PROPRANOLOL [Concomitant]
     Active Substance: PROPRANOLOL\PROPRANOLOL HYDROCHLORIDE
  3. VYVANSE [Concomitant]
     Active Substance: LISDEXAMFETAMINE DIMESYLATE
  4. RANITIDINE. [Concomitant]
     Active Substance: RANITIDINE
  5. FORFIVO XL [Concomitant]
     Active Substance: BUPROPION HYDROCHLORIDE
  6. DULOXETINE. [Concomitant]
     Active Substance: DULOXETINE
  7. VITAMIN D3 [Concomitant]
     Active Substance: CHOLECALCIFEROL
  8. ESOMEPRAZOLE MAG DR 40MG CAP, 40 MG MYLAN [Suspect]
     Active Substance: ESOMEPRAZOLE MAGNESIUM
     Indication: GASTROOESOPHAGEAL REFLUX DISEASE
     Dosage: 90 CAPSULE(S) ONCE A DAY TAKEN BY MOUTH
     Route: 048
     Dates: start: 20160116

REACTIONS (8)
  - Laryngitis [None]
  - Product substitution issue [None]
  - Acidosis [None]
  - Gastrooesophageal reflux disease [None]
  - Asthma [None]
  - Irritable bowel syndrome [None]
  - Pain [None]
  - Hyperchlorhydria [None]

NARRATIVE: CASE EVENT DATE: 20160118
